FAERS Safety Report 9457973 (Version 1)
Quarter: 2013Q3

REPORT INFORMATION
  Report Type: Spontaneous
  Country: US (occurrence: None)
  Receive Date: 20130809
  Receipt Date: 20130809
  Transmission Date: 20140515
  Serious: Yes (Death)
  Sender: FDA-Public Use
  Company Number: UTC-036182

PATIENT
  Age: 79 Year
  Sex: Female
  Weight: 68.2 kg

DRUGS (3)
  1. TYVASO [Suspect]
     Indication: PULMONARY ARTERIAL HYPERTENSION
     Dosage: 4 IN 1 D
     Route: 055
     Dates: start: 20121221
  2. LETAIRIS (AMBRISSENTAN) (UNKNOWN) [Concomitant]
  3. REVATIO (SILDENAFIL CITRATE) (UNKNOWN) (SILDENAFIL) [Concomitant]

REACTIONS (1)
  - Death [None]
